FAERS Safety Report 4985147-3 (Version None)
Quarter: 2006Q2

REPORT INFORMATION
  Report Type: 
  Country: None (occurrence: None)
  Receive Date: 20060427
  Receipt Date: 20050721
  Transmission Date: 20061013
  Serious: Yes (Death, Hospitalization)
  Sender: FDA-Public Use
  Company Number: US-MERCK-0507USA03363

PATIENT
  Age: 68 Year
  Sex: Male
  Weight: 114 kg

DRUGS (10)
  1. VIOXX [Suspect]
     Indication: ARTHRITIS
     Route: 048
     Dates: start: 19991201, end: 20031108
  2. VIOXX [Suspect]
     Indication: ARTHRALGIA
     Route: 048
     Dates: start: 19991201, end: 20031108
  3. PREVACID [Concomitant]
     Indication: GASTROOESOPHAGEAL REFLUX DISEASE
     Route: 065
  4. ATENOLOL [Concomitant]
     Indication: HYPERTENSION
     Route: 065
     Dates: start: 19991001, end: 20031108
  5. WARFARIN [Concomitant]
     Indication: KNEE OPERATION
     Route: 065
     Dates: start: 19991201, end: 20010101
  6. WARFARIN [Concomitant]
     Indication: PROPHYLAXIS
     Route: 065
     Dates: start: 19991201, end: 20010101
  7. CELEBREX [Concomitant]
     Indication: ARTHRITIS
     Route: 065
     Dates: start: 19991001, end: 19991201
  8. CELEBREX [Concomitant]
     Indication: ARTHRALGIA
     Route: 065
     Dates: start: 19991001, end: 19991201
  9. ASPIRIN [Concomitant]
     Indication: PAIN
     Route: 065
     Dates: start: 19850101, end: 19990101
  10. NORVASC [Concomitant]
     Indication: HYPERTENSION
     Route: 065
     Dates: start: 20000101, end: 20031108

REACTIONS (7)
  - ABDOMINAL PAIN [None]
  - ARTHROPATHY [None]
  - CARDIAC ARREST [None]
  - CARDIO-RESPIRATORY ARREST [None]
  - LOSS OF CONSCIOUSNESS [None]
  - MYOCARDIAL INFARCTION [None]
  - STOMACH DISCOMFORT [None]
